FAERS Safety Report 4374537-8 (Version None)
Quarter: 2004Q2

REPORT INFORMATION
  Report Type: 
  Country: None (occurrence: None)
  Receive Date: 20040609
  Receipt Date: 20031209
  Transmission Date: 20050107
  Serious: Yes (Hospitalization)
  Sender: FDA-Public Use
  Company Number: AU-BRISTOL-MYERS SQUIBB COMPANY-12452587

PATIENT
  Age: 71 Year
  Sex: Male

DRUGS (16)
  1. BLINDED: ABATACEPT [Suspect]
     Indication: RHEUMATOID ARTHRITIS
     Route: 042
     Dates: start: 20030311
  2. BLINDED: PLACEBO [Suspect]
     Indication: RHEUMATOID ARTHRITIS
     Route: 042
     Dates: start: 20030311
  3. METHOTREXATE [Suspect]
  4. PREDNISOLONE [Concomitant]
  5. SLOW-K [Concomitant]
  6. FOLIC ACID [Concomitant]
  7. FUROSEMIDE [Concomitant]
  8. SOTALOL HCL [Concomitant]
  9. GLICLAZIDE [Concomitant]
  10. DIAFORMIN [Concomitant]
  11. ESOMEPRAZOLE [Concomitant]
  12. LISINOPRIL [Concomitant]
  13. WARFARIN SODIUM [Concomitant]
  14. TEMAZEPAM [Concomitant]
     Dosage: NOCTE
  15. TRANSDERM-NITRO [Concomitant]
     Dosage: PATCH
  16. ACETAMINOPHEN W/ CODEINE [Concomitant]

REACTIONS (2)
  - BRONCHOPNEUMONIA [None]
  - MYRINGITIS [None]
